FAERS Safety Report 4543385-8 (Version None)
Quarter: 2004Q4

REPORT INFORMATION
  Report Type: 
  Country: None (occurrence: None)
  Receive Date: 20041230
  Receipt Date: 20041230
  Transmission Date: 20050328
  Serious: Yes (Hospitalization)
  Sender: FDA-Public Use
  Company Number: None

PATIENT
  Sex: Male
  Weight: 88.4514 kg

DRUGS (8)
  1. NAMENDA [Suspect]
     Indication: DEMENTIA ALZHEIMER'S TYPE
     Dosage: 5 MG BID ORAL
     Route: 048
     Dates: start: 20041206, end: 20041216
  2. NAMENDA [Suspect]
     Indication: VASCULAR DEMENTIA
     Dosage: 5 MG BID ORAL
     Route: 048
     Dates: start: 20041206, end: 20041216
  3. .. [Concomitant]
  4. OXYCONTIN [Concomitant]
  5. FLOMAX [Concomitant]
  6. ATENOLOL [Concomitant]
  7. COLACE [Concomitant]
  8. CELEXA [Concomitant]

REACTIONS (8)
  - ABNORMAL BEHAVIOUR [None]
  - AGITATION [None]
  - AMNESIA [None]
  - CONFUSIONAL STATE [None]
  - DELIRIUM [None]
  - INCOHERENT [None]
  - INSOMNIA [None]
  - SEDATION [None]
